FAERS Safety Report 6146592-6 (Version None)
Quarter: 2009Q2

REPORT INFORMATION
  Report Type: 
  Country: None (occurrence: None)
  Receive Date: 20090407
  Receipt Date: 20090325
  Transmission Date: 20091009
  Serious: Yes (Other)
  Sender: FDA-Public Use
  Company Number: GB-ELI_LILLY_AND_COMPANY-GB200903006531

PATIENT
  Age: 48 Year
  Sex: Female

DRUGS (4)
  1. CYMBALTA [Suspect]
     Indication: DEPRESSION
     Dosage: 30 MG, UNKNOWN
     Route: 048
     Dates: start: 20070425, end: 20071023
  2. CITALOPRAM HYDROBROMIDE [Concomitant]
     Indication: DEPRESSION
     Dosage: 10 MG, UNKNOWN
     Route: 048
     Dates: start: 20070207, end: 20070319
  3. CLOMIPRAMINE HCL [Concomitant]
     Indication: DEPRESSION
     Dosage: 25 MG, UNKNOWN
     Route: 048
     Dates: start: 20070327, end: 20070401
  4. FLUANXOL [Concomitant]
     Indication: DEPRESSION
     Dosage: UNK, UNKNOWN
     Route: 048
     Dates: start: 19960917, end: 20070919

REACTIONS (2)
  - BLOOD PRESSURE INCREASED [None]
  - INCONTINENCE [None]
